FAERS Safety Report 22347346 (Version 1)
Quarter: 2023Q2

REPORT INFORMATION
  Report Type: Spontaneous
  Country: US (occurrence: US)
  Receive Date: 20230521
  Receipt Date: 20230521
  Transmission Date: 20230722
  Serious: Yes (Hospitalization, Other)
  Sender: FDA-Public Use
  Company Number: US-SA-2023SA150317

PATIENT
  Age: 16 Year
  Sex: Female

DRUGS (6)
  1. ANTI-THYMOCYTE GLOBULIN (RABBIT) NOS [Suspect]
     Active Substance: LAPINE T-LYMPHOCYTE IMMUNE GLOBULIN
     Indication: Immunosuppressant drug therapy
     Dosage: 4.5 NG/KG
  2. PREDNISONE [Suspect]
     Active Substance: PREDNISONE
     Indication: Immunosuppressant drug therapy
  3. RITUXIMAB [Suspect]
     Active Substance: RITUXIMAB
     Indication: Granulomatosis with polyangiitis
     Dosage: 2 DF
  4. RITUXIMAB [Suspect]
     Active Substance: RITUXIMAB
     Dosage: 1 DF (6 MONTHS LATER)
  5. MYCOPHENOLATE MOFETIL [Suspect]
     Active Substance: MYCOPHENOLATE MOFETIL
     Indication: Immunosuppressant drug therapy
  6. TACROLIMUS [Suspect]
     Active Substance: TACROLIMUS
     Indication: Immunosuppressant drug therapy

REACTIONS (14)
  - Polyarthritis [Recovered/Resolved]
  - Joint range of motion decreased [Recovered/Resolved]
  - Ureaplasma infection [Recovered/Resolved]
  - Lymphopenia [Recovered/Resolved]
  - Gait disturbance [Recovered/Resolved]
  - Arthralgia [Recovered/Resolved]
  - Cellulitis [Recovered/Resolved]
  - Joint effusion [Recovered/Resolved]
  - Tenosynovitis [Recovered/Resolved]
  - Myositis [Recovered/Resolved]
  - Joint swelling [Recovered/Resolved]
  - Fasciitis [Recovered/Resolved]
  - Pain [Recovered/Resolved]
  - Polyomavirus viraemia [Recovered/Resolved]
